FAERS Safety Report 14298173 (Version 1)
Quarter: 2017Q4

REPORT INFORMATION
  Report Type: Spontaneous
  Country: US (occurrence: US)
  Receive Date: 20171218
  Receipt Date: 20171218
  Transmission Date: 20180321
  Serious: No
  Sender: FDA-Public Use
  Company Number: US-BTG INTERNATIONAL, LTD.-2017BTG01254

PATIENT
  Age: 52 Year
  Sex: Male

DRUGS (13)
  1. TRAMADOL. [Concomitant]
     Active Substance: TRAMADOL
     Indication: PRODUCT USED FOR UNKNOWN INDICATION
     Dosage: 50 MG, UNK
  2. CARVEDILOL. [Concomitant]
     Active Substance: CARVEDILOL
     Indication: PRODUCT USED FOR UNKNOWN INDICATION
     Dosage: 6.25 MG, UNK
  3. METFORMIN [Concomitant]
     Active Substance: METFORMIN HYDROCHLORIDE
     Indication: PRODUCT USED FOR UNKNOWN INDICATION
     Dosage: 1000 MG, UNK
  4. HUMALOG [Concomitant]
     Active Substance: INSULIN LISPRO
     Indication: PRODUCT USED FOR UNKNOWN INDICATION
     Dosage: 100 UNITS/ML, UNK
  5. VARITHENA [Suspect]
     Active Substance: POLIDOCANOL
     Indication: PERIPHERAL VENOUS DISEASE
     Dosage: 10 CC, UNK
     Dates: start: 20170308
  6. LISINOPRIL. [Concomitant]
     Active Substance: LISINOPRIL
     Indication: PRODUCT USED FOR UNKNOWN INDICATION
     Dosage: 40 MG, UNK
  7. VICTOZA [Concomitant]
     Active Substance: LIRAGLUTIDE
     Indication: PRODUCT USED FOR UNKNOWN INDICATION
     Dosage: 18 MG/ML, UNK
  8. TOUJEO [Concomitant]
     Active Substance: INSULIN GLARGINE
     Indication: PRODUCT USED FOR UNKNOWN INDICATION
     Dosage: 300 UNITS/ML, UNK
  9. JARDIANCE [Concomitant]
     Active Substance: EMPAGLIFLOZIN
     Indication: PRODUCT USED FOR UNKNOWN INDICATION
     Dosage: 25 MG, UNK
  10. ISOSORBIDE MONONITRATE. [Concomitant]
     Active Substance: ISOSORBIDE MONONITRATE
     Indication: PRODUCT USED FOR UNKNOWN INDICATION
     Dosage: 30 MG, UNK
  11. GABAPENTIN. [Concomitant]
     Active Substance: GABAPENTIN
     Indication: PRODUCT USED FOR UNKNOWN INDICATION
     Dosage: 300 MG, UNK
  12. VARITHENA [Suspect]
     Active Substance: POLIDOCANOL
     Indication: OEDEMA
  13. NITROSTAT [Concomitant]
     Active Substance: NITROGLYCERIN
     Indication: PRODUCT USED FOR UNKNOWN INDICATION
     Dosage: 0.4 MG, UNK

REACTIONS (1)
  - Deep vein thrombosis [Recovered/Resolved with Sequelae]

NARRATIVE: CASE EVENT DATE: 20170313
